FAERS Safety Report 17086880 (Version 1)
Quarter: 2019Q4

REPORT INFORMATION
  Report Type: Spontaneous
  Country: US (occurrence: US)
  Receive Date: 20191031
  Receipt Date: 20191031
  Transmission Date: 20200122
  Serious: Yes (Hospitalization)
  Sender: FDA-Public Use
  Company Number: None

PATIENT
  Age: 41 Year
  Sex: Male

DRUGS (2)
  1. LISINOPRIL. [Suspect]
     Active Substance: LISINOPRIL
     Indication: DIABETES MELLITUS
     Route: 048
     Dates: start: 20191016
  2. LISINOPRIL. [Suspect]
     Active Substance: LISINOPRIL
     Indication: HYPERTENSION
     Route: 048
     Dates: start: 20191016

REACTIONS (14)
  - Eating disorder [None]
  - Acute kidney injury [None]
  - Chromaturia [None]
  - Blood creatinine increased [None]
  - Angioedema [None]
  - Fall [None]
  - Weight decreased [None]
  - Vasculitis [None]
  - Micturition urgency [None]
  - Dehydration [None]
  - Blood urea increased [None]
  - Urinary tract disorder [None]
  - Nausea [None]
  - Loss of consciousness [None]

NARRATIVE: CASE EVENT DATE: 20191016
